FAERS Safety Report 6406225-8 (Version None)
Quarter: 2009Q4

REPORT INFORMATION
  Report Type: 
  Country: None (occurrence: None)
  Receive Date: 20091019
  Receipt Date: 20091005
  Transmission Date: 20100525
  Serious: Yes (Hospitalization, Other)
  Sender: FDA-Public Use
  Company Number: PHHY2009JP43060

PATIENT
  Sex: Female

DRUGS (9)
  1. COMTAN CMT+TAB [Suspect]
     Indication: DRUG EFFECT DECREASED
     Dosage: 300 MG, DAILY
     Route: 048
     Dates: start: 20090402, end: 20090427
  2. COMTAN CMT+TAB [Suspect]
     Dosage: 500 MG, DAILY
     Route: 048
     Dates: start: 20090428, end: 20091005
  3. PARLODEL [Suspect]
  4. CARBIDOPA AND LEVODOPA [Concomitant]
     Indication: PARKINSON'S DISEASE
     Dosage: 500 MG, UNK
     Route: 048
     Dates: start: 19901005
  5. SYMMETREL [Concomitant]
     Indication: PARKINSON'S DISEASE
     Dosage: 200 MG, UNK
     Route: 048
     Dates: start: 19910221, end: 20090727
  6. PRAMIPEXOLE [Concomitant]
     Indication: PARKINSON'S DISEASE
     Dosage: 4 MG, UNK
     Route: 048
     Dates: start: 20050412
  7. AMLODIPINE BESYLATE [Concomitant]
     Indication: HYPERTENSION
     Dosage: 2.5 MG, UNK
     Route: 048
     Dates: start: 20030922
  8. SENNOSIDE [Concomitant]
     Indication: CONSTIPATION
     Dosage: 24 MG, UNK
     Dates: start: 20030424
  9. ZOPICLONE [Concomitant]
     Indication: INSOMNIA
     Dosage: 7.5 MG, UNK
     Dates: start: 20080131

REACTIONS (4)
  - DYSKINESIA [None]
  - PYREXIA [None]
  - THIRST [None]
  - URINARY TRACT INFECTION [None]
